FAERS Safety Report 7262421-1 (Version None)
Quarter: 2011Q1

REPORT INFORMATION
  Report Type: 
  Country: None (occurrence: None)
  Receive Date: 20110130
  Receipt Date: 20101116
  Transmission Date: 20110831
  Serious: No
  Sender: FDA-Public Use
  Company Number: US-ABBOTT-10P-163-0686332-00

PATIENT
  Sex: Female
  Weight: 74.91 kg

DRUGS (6)
  1. LISINOPRIL [Concomitant]
     Indication: PRODUCT USED FOR UNKNOWN INDICATION
  2. VITAMIN D [Concomitant]
     Indication: PRODUCT USED FOR UNKNOWN INDICATION
  3. AMITRYPTILINE [Concomitant]
     Indication: PRODUCT USED FOR UNKNOWN INDICATION
  4. METOPROLOL [Concomitant]
     Indication: PRODUCT USED FOR UNKNOWN INDICATION
  5. HUMIRA [Suspect]
     Indication: PSORIATIC ARTHROPATHY
     Dates: start: 20070101
  6. CELEBREX [Concomitant]
     Indication: PRODUCT USED FOR UNKNOWN INDICATION

REACTIONS (10)
  - NASAL OEDEMA [None]
  - HEAD INJURY [None]
  - STAPHYLOCOCCAL INFECTION [None]
  - VISION BLURRED [None]
  - LIP SWELLING [None]
  - CONCUSSION [None]
  - FALL [None]
  - HEADACHE [None]
  - SINUSITIS [None]
  - SWELLING FACE [None]
